FAERS Safety Report 6899031-1 (Version None)
Quarter: 2010Q3

REPORT INFORMATION
  Report Type: 
  Country: None (occurrence: None)
  Receive Date: 20100802
  Receipt Date: 20071220
  Transmission Date: 20110219
  Serious: No
  Sender: FDA-Public Use
  Company Number: US-PFIZER INC-2006026842

PATIENT
  Sex: Female
  Weight: 54.43 kg

DRUGS (10)
  1. LYRICA [Suspect]
     Indication: PAIN
     Route: 048
     Dates: start: 20050219, end: 20060219
  2. LYRICA [Suspect]
     Dates: start: 20071207
  3. LORTAB [Concomitant]
  4. SOMA [Concomitant]
  5. DITROPAN [Concomitant]
  6. RIBELFAN [Concomitant]
  7. ACCUPRIL [Concomitant]
  8. LIPITOR [Concomitant]
  9. LIBRAX [Concomitant]
  10. ZOCOR [Concomitant]

REACTIONS (4)
  - FEELING ABNORMAL [None]
  - MALAISE [None]
  - NAUSEA [None]
  - SEDATION [None]
